FAERS Safety Report 9463956 (Version 1)
Quarter: 2013Q3

REPORT INFORMATION
  Report Type: Spontaneous
  Country: US (occurrence: US)
  Receive Date: 20130819
  Receipt Date: 20130819
  Transmission Date: 20140515
  Serious: No
  Sender: FDA-Public Use
  Company Number: US-BRISTOL-MYERS SQUIBB COMPANY-16753105

PATIENT
  Age: 51 Year
  Sex: Female

DRUGS (3)
  1. REYATAZ [Suspect]
     Dosage: TWO TIMES MISSED DOSE
  2. NORVIR [Concomitant]
  3. TRUVADA [Concomitant]

REACTIONS (2)
  - Pruritus [Recovered/Resolved]
  - Drug dose omission [Unknown]
